FAERS Safety Report 7333365-1 (Version None)
Quarter: 2011Q1

REPORT INFORMATION
  Report Type: 
  Country: None (occurrence: None)
  Receive Date: 20110304
  Receipt Date: 20110221
  Transmission Date: 20110831
  Serious: Yes (Hospitalization, Other)
  Sender: FDA-Public Use
  Company Number: US-ELI_LILLY_AND_COMPANY-US201101005964

PATIENT
  Sex: Male
  Weight: 77.551 kg

DRUGS (4)
  1. ASA [Concomitant]
     Dosage: 162 MG, DAILY (1/D)
  2. ANDROGEL [Concomitant]
  3. CIALIS [Suspect]
     Indication: ERECTILE DYSFUNCTION
     Dosage: 20 MG, AS NEEDED
     Route: 048
  4. DIOVAN [Concomitant]
     Dosage: 160 MG, DAILY (1/D)

REACTIONS (4)
  - ATRIAL FIBRILLATION [None]
  - HYPERTENSION [None]
  - HYPOTENSION [None]
  - POTENTIATING DRUG INTERACTION [None]
